FAERS Safety Report 19243368 (Version 3)
Quarter: 2021Q2

REPORT INFORMATION
  Report Type: Report from Study
  Country: US (occurrence: US)
  Receive Date: 20210511
  Receipt Date: 20210608
  Transmission Date: 20210717
  Serious: Yes (Other)
  Sender: FDA-Public Use
  Company Number: US-ROCHE-2744334

PATIENT
  Age: 43 Year
  Sex: Female
  Weight: 65.1 kg

DRUGS (2)
  1. ATEZOLIZUMAB. [Suspect]
     Active Substance: ATEZOLIZUMAB
     Indication: ALVEOLAR SOFT PART SARCOMA
     Dosage: ATEZOLIZUMAB LAST ADMINISTERED DATE: 21/FEB/2020 AND 24?AUG?2020?DOSE: CYCLE 21 DAYS, 1200 MG IV OVE
     Route: 041
     Dates: start: 20191219, end: 20200330
  2. PREDNISONE. [Concomitant]
     Active Substance: PREDNISONE

REACTIONS (2)
  - Adrenal insufficiency [Not Recovered/Not Resolved]
  - Pneumonitis [Unknown]

NARRATIVE: CASE EVENT DATE: 20200512
